FAERS Safety Report 17213736 (Version 1)
Quarter: 2019Q4

REPORT INFORMATION
  Report Type: Spontaneous
  Country: US (occurrence: US)
  Receive Date: 20191205
  Receipt Date: 20191205
  Transmission Date: 20200122
  Serious: Yes (Hospitalization)
  Sender: FDA-Public Use
  Company Number: None

PATIENT
  Sex: Male
  Weight: 63.4 kg

DRUGS (3)
  1. CISPLATIN. [Suspect]
     Active Substance: CISPLATIN
  2. ETOPOSIDE (VP-16) [Suspect]
     Active Substance: ETOPOSIDE
  3. BLEOMYCIN [Suspect]
     Active Substance: BLEOMYCIN SULFATE

REACTIONS (10)
  - Haemoglobin decreased [None]
  - Extragonadal primary germ cell tumour [None]
  - Back pain [None]
  - Disease recurrence [None]
  - Hypotension [None]
  - Feeling of body temperature change [None]
  - Chills [None]
  - Nausea [None]
  - Pyrexia [None]
  - Oncologic complication [None]

NARRATIVE: CASE EVENT DATE: 20191126
